FAERS Safety Report 9733518 (Version 2)
Quarter: 2014Q1

REPORT INFORMATION
  Report Type: Spontaneous
  Country: US (occurrence: US)
  Receive Date: 20131205
  Receipt Date: 20140117
  Transmission Date: 20141002
  Serious: Yes (Hospitalization, Other)
  Sender: FDA-Public Use
  Company Number: US-009507513-1311USA011161

PATIENT
  Sex: Female

DRUGS (2)
  1. COZAAR [Suspect]
     Indication: HYPERTENSION
     Dosage: 50 MG, QD
     Route: 048
     Dates: start: 201011, end: 201108
  2. COZAAR [Suspect]
     Dosage: 100 MG, QD
     Route: 048
     Dates: start: 201108

REACTIONS (3)
  - Surgery [Recovered/Resolved]
  - Blood pressure increased [Recovered/Resolved]
  - Adverse event [Unknown]
